FAERS Safety Report 15232573 (Version 1)
Quarter: 2018Q3

REPORT INFORMATION
  Report Type: Report from Study
  Country: MX (occurrence: MX)
  Receive Date: 20180802
  Receipt Date: 20180802
  Transmission Date: 20181010
  Serious: Yes (Hospitalization)
  Sender: FDA-Public Use
  Company Number: PHHY2018MX061469

PATIENT
  Age: 65 Year
  Sex: Male

DRUGS (3)
  1. BRINTELLIX [Concomitant]
     Active Substance: VORTIOXETINE HYDROBROMIDE
     Indication: DEPRESSION
     Dosage: 1 DF, QD (SINCE 2 YEARS)
     Route: 065
  2. STALEVO [Suspect]
     Active Substance: CARBIDOPA\ENTACAPONE\LEVODOPA
     Indication: PARKINSON^S DISEASE
     Dosage: 3 DF, (LEVODOPA 125MG, CARBIDOPA 31.25MG, ENTACAPONE 200MG) QD
     Route: 048
     Dates: end: 201805
  3. EBIXA [Concomitant]
     Active Substance: MEMANTINE HYDROCHLORIDE
     Indication: CEREBRAL DISORDER
     Dosage: 1 DF, QD SINCE 2 YEARS)
     Route: 065

REACTIONS (3)
  - Obstructive airways disorder [Recovering/Resolving]
  - Respiratory arrest [Unknown]
  - Dysphagia [Unknown]

NARRATIVE: CASE EVENT DATE: 20180101
